FAERS Safety Report 7169879-7 (Version None)
Quarter: 2010Q4

REPORT INFORMATION
  Report Type: 
  Country: None (occurrence: None)
  Receive Date: 20101217
  Receipt Date: 20101214
  Transmission Date: 20110411
  Serious: Yes (Death)
  Sender: FDA-Public Use
  Company Number: PHHY2010BR85026

PATIENT
  Age: 59 Year
  Sex: Female

DRUGS (2)
  1. FORASEQ [Suspect]
     Dosage: UNK
  2. ZELMAC [Suspect]
     Dosage: 6 MG 30

REACTIONS (1)
  - DEATH [None]
